FAERS Safety Report 9453961 (Version 1)
Quarter: 2013Q3

REPORT INFORMATION
  Report Type: Spontaneous
  Country: FR (occurrence: FR)
  Receive Date: 20130812
  Receipt Date: 20130812
  Transmission Date: 20140515
  Serious: Yes (Hospitalization)
  Sender: FDA-Public Use
  Company Number: FR-SANOFI-AVENTIS-2013SA052982

PATIENT
  Age: 50 Year
  Sex: Male

DRUGS (14)
  1. LASILIX [Suspect]
     Indication: PRODUCT USED FOR UNKNOWN INDICATION
     Route: 048
     Dates: end: 20120904
  2. LASILIX SPECIAL [Suspect]
     Indication: PRODUCT USED FOR UNKNOWN INDICATION
     Route: 048
     Dates: start: 20120904, end: 20130205
  3. SOLUPRED [Suspect]
     Indication: PRODUCT USED FOR UNKNOWN INDICATION
     Route: 048
     Dates: start: 20120818, end: 20130205
  4. MOPRAL [Suspect]
     Indication: PRODUCT USED FOR UNKNOWN INDICATION
     Route: 048
     Dates: end: 20120902
  5. INEXIUM [Suspect]
     Indication: PRODUCT USED FOR UNKNOWN INDICATION
     Route: 048
     Dates: start: 20120903, end: 20130221
  6. AMLOR [Suspect]
     Indication: PRODUCT USED FOR UNKNOWN INDICATION
     Dosage: STRENGTH: 10 MG
     Route: 048
     Dates: end: 20130204
  7. RENAGEL [Suspect]
     Indication: PRODUCT USED FOR UNKNOWN INDICATION
     Dosage: STRENGTH: 800 MG
     Route: 048
     Dates: start: 20120817, end: 20130204
  8. CALCIDIA [Suspect]
     Indication: PRODUCT USED FOR UNKNOWN INDICATION
     Dosage: STRENGTH: 1.54 G
     Route: 048
     Dates: start: 20120817, end: 20120908
  9. OROCAL [Suspect]
     Indication: PRODUCT USED FOR UNKNOWN INDICATION
     Dosage: STRENGTH: 500 MG
     Route: 048
     Dates: start: 20120909, end: 20130214
  10. ADVAGRAF [Concomitant]
  11. DETENSIEL [Concomitant]
  12. BISOCE [Concomitant]
  13. ASPEGIC [Concomitant]
  14. KARDEGIC [Concomitant]

REACTIONS (2)
  - Cholestasis [Recovering/Resolving]
  - Jaundice [Recovered/Resolved]
